FAERS Safety Report 8387072-7 (Version None)
Quarter: 2012Q2

REPORT INFORMATION
  Report Type: 
  Country: None (occurrence: None)
  Receive Date: 20120525
  Receipt Date: 20120517
  Transmission Date: 20120825
  Serious: Yes (Death)
  Sender: FDA-Public Use
  Company Number: US-ACTELION-A-US2012-65995

PATIENT

DRUGS (3)
  1. REMODULIN [Concomitant]
  2. TRACLEER [Suspect]
     Indication: PULMONARY ARTERIAL HYPERTENSION
     Dosage: UNK
     Route: 048
     Dates: start: 20081106, end: 20120512
  3. REVATIO [Concomitant]

REACTIONS (3)
  - OBESITY SURGERY [None]
  - HYPOXIA [None]
  - PROCEDURAL HYPOTENSION [None]
